FAERS Safety Report 17219467 (Version 4)
Quarter: 2021Q4

REPORT INFORMATION
  Report Type: Spontaneous
  Country: US (occurrence: US)
  Receive Date: 20191231
  Receipt Date: 20211103
  Transmission Date: 20220304
  Serious: No
  Sender: FDA-Public Use
  Company Number: US-PFIZER INC-2016537582

PATIENT
  Age: 49 Year
  Sex: Female
  Weight: 88.9 kg

DRUGS (4)
  1. SOMAVERT [Suspect]
     Active Substance: PEGVISOMANT
     Indication: Acromegaly
     Dosage: 20 MG, UNK
     Dates: start: 20071102
  2. SOMAVERT [Suspect]
     Active Substance: PEGVISOMANT
     Indication: Blood growth hormone increased
     Dosage: 10 MG, 1X/DAY
     Route: 058
     Dates: start: 2007
  3. SOMAVERT [Suspect]
     Active Substance: PEGVISOMANT
     Indication: Blood growth hormone abnormal
     Dosage: 20 MG, 1X/DAY
  4. LEVOTHYROXINE [Concomitant]
     Active Substance: LEVOTHYROXINE
     Indication: Thyroid disorder
     Dosage: 50 MG, 1X/DAY [MOUTH IN THE MORNING BEFORE SHE EATS]
     Route: 048

REACTIONS (2)
  - Dysphonia [Unknown]
  - Product dose omission issue [Unknown]

NARRATIVE: CASE EVENT DATE: 20210618
